FAERS Safety Report 4813972-8 (Version None)
Quarter: 2005Q4

REPORT INFORMATION
  Report Type: 
  Country: None (occurrence: None)
  Receive Date: 20051028
  Receipt Date: 20041203
  Transmission Date: 20060501
  Serious: No
  Sender: FDA-Public Use
  Company Number: US-GLAXOSMITHKLINE-A0536033A

PATIENT
  Age: 49 Year
  Sex: Female

DRUGS (3)
  1. SEREVENT [Suspect]
     Indication: ASTHMA
     Dosage: 50MCG TWICE PER DAY
     Route: 055
     Dates: start: 20020101
  2. ALBUTEROL [Concomitant]
  3. FOSAMAX [Concomitant]

REACTIONS (1)
  - ILL-DEFINED DISORDER [None]
